FAERS Safety Report 22623755 (Version 1)
Quarter: 2023Q2

REPORT INFORMATION
  Report Type: Spontaneous
  Country: US (occurrence: US)
  Receive Date: 20230621
  Receipt Date: 20230621
  Transmission Date: 20230722
  Serious: No
  Sender: FDA-Public Use
  Company Number: US-BAYER-2023A081532

PATIENT
  Age: 88 Year
  Sex: Female

DRUGS (1)
  1. MIRALAX [Suspect]
     Active Substance: POLYETHYLENE GLYCOL 3350
     Dosage: 7 DOSES IN 1 DAY DOSE
     Route: 048
     Dates: start: 20230609, end: 20230609

REACTIONS (1)
  - Product prescribing issue [Unknown]

NARRATIVE: CASE EVENT DATE: 20230609
